FAERS Safety Report 7823937-X (Version None)
Quarter: 2011Q4

REPORT INFORMATION
  Report Type: 
  Country: None (occurrence: None)
  Receive Date: 20111018
  Receipt Date: 20111018
  Transmission Date: 20120403
  Serious: Yes (Hospitalization)
  Sender: FDA-Public Use
  Company Number: None

PATIENT
  Age: 78 Year
  Sex: Male

DRUGS (10)
  1. VERAPMIL [Concomitant]
  2. REVLIMID [Suspect]
     Indication: MULTIPLE MYELOMA
     Dosage: 10MG QD ORALLY
     Route: 048
  3. ZYLOPRIM [Concomitant]
  4. PROAIR HFA [Concomitant]
  5. PROSCAR [Concomitant]
  6. QVAR 40 [Concomitant]
  7. K-TAB [Concomitant]
  8. LASIX [Concomitant]
  9. OMEPRAZOLE [Concomitant]
  10. DECADRON [Concomitant]

REACTIONS (1)
  - FEBRILE NEUTROPENIA [None]
